FAERS Safety Report 8830812 (Version 2)
Quarter: 2013Q2

REPORT INFORMATION
  Report Type: Spontaneous
  Country: US (occurrence: US)
  Receive Date: 20121009
  Receipt Date: 20130514
  Transmission Date: 20140414
  Serious: Yes (Hospitalization)
  Sender: FDA-Public Use
  Company Number: US-ELI_LILLY_AND_COMPANY-US201209008301

PATIENT
  Age: 56 Year
  Sex: Female

DRUGS (3)
  1. HUMULIN REGULAR [Suspect]
     Indication: DIABETES MELLITUS
     Dosage: UNK UNK, OTHER
  2. HUMULIN NPH [Suspect]
     Indication: DIABETES MELLITUS
     Dosage: UNK, UNKNOWN
  3. LANTUS [Concomitant]
     Dosage: UNK, UNKNOWN

REACTIONS (7)
  - Abscess [Unknown]
  - Staphylococcal infection [Unknown]
  - Insomnia [Unknown]
  - Nonspecific reaction [Unknown]
  - Hyperhidrosis [Unknown]
  - Mood altered [Unknown]
  - Hot flush [Unknown]
